FAERS Safety Report 8412930-4 (Version None)
Quarter: 2012Q2

REPORT INFORMATION
  Report Type: 
  Country: None (occurrence: None)
  Receive Date: 20120605
  Receipt Date: 20120525
  Transmission Date: 20120825
  Serious: No
  Sender: FDA-Public Use
  Company Number: US-AMGEN-USASP2012033076

PATIENT
  Sex: Female

DRUGS (7)
  1. ZOLPIDEM TARTRATE [Concomitant]
     Dosage: 1 MG, UNK
  2. TRICOR [Concomitant]
     Dosage: 1 MG, UNK
  3. BUPROPION HCL [Concomitant]
     Dosage: 1 MG, UNK
  4. FOLIC ACID [Concomitant]
     Dosage: 1 MG, UNK
  5. LISINOPRIL AND HYDROCHLOROTHIAZIDE [Concomitant]
  6. METHOTREXATE [Concomitant]
     Dosage: 5 MG, UNK
  7. ENBREL [Suspect]
     Indication: RHEUMATOID ARTHRITIS
     Dosage: 50 MG, QWK

REACTIONS (2)
  - INJECTION SITE HAEMATOMA [None]
  - INJECTION SITE HAEMORRHAGE [None]
